FAERS Safety Report 22523777 (Version 1)
Quarter: 2023Q2

REPORT INFORMATION
  Report Type: Spontaneous
  Country: CN (occurrence: CN)
  Receive Date: 20230606
  Receipt Date: 20230606
  Transmission Date: 20230721
  Serious: Yes (Hospitalization, Other)
  Sender: FDA-Public Use
  Company Number: CN-TAKEDA-2023TUS054556

PATIENT
  Age: 75 Year
  Sex: Female
  Weight: 50 kg

DRUGS (2)
  1. ALOGLIPTIN [Suspect]
     Active Substance: ALOGLIPTIN
     Indication: Type 2 diabetes mellitus
     Dosage: 25 MILLIGRAM, QD
     Route: 048
     Dates: start: 20230228, end: 20230506
  2. METFORMIN HYDROCHLORIDE [Concomitant]
     Active Substance: METFORMIN HYDROCHLORIDE
     Indication: Type 2 diabetes mellitus
     Dosage: 0.5 GRAM, BID
     Route: 048
     Dates: start: 20230228, end: 20230506

REACTIONS (2)
  - Alanine aminotransferase increased [Recovering/Resolving]
  - Aspartate aminotransferase increased [Recovering/Resolving]

NARRATIVE: CASE EVENT DATE: 20230429
